FAERS Safety Report 18425525 (Version 2)
Quarter: 2020Q4

REPORT INFORMATION
  Report Type: Spontaneous
  Country: KR (occurrence: KR)
  Receive Date: 20201026
  Receipt Date: 20201106
  Transmission Date: 20210114
  Serious: Yes (Death, Other)
  Sender: FDA-Public Use
  Company Number: KR-PFIZER INC-2020413878

PATIENT
  Age: 50 Year
  Sex: Female

DRUGS (6)
  1. TRANSAMIN [Concomitant]
     Active Substance: TRANEXAMIC ACID
     Dosage: 500 MG (2 TAB), 3X/DAY
     Route: 048
  2. XALKORI [Suspect]
     Active Substance: CRIZOTINIB
     Indication: LUNG NEOPLASM MALIGNANT
     Dosage: 250 MG, 2X/DAY
     Route: 048
  3. XALKORI [Suspect]
     Active Substance: CRIZOTINIB
     Dosage: 250 MG, 1X/DAY
     Route: 048
  4. GASTER [Concomitant]
     Active Substance: FAMOTIDINE
     Dosage: 20 MG, 1 TAB, 2X/DAY
     Route: 048
  5. XALKORI [Suspect]
     Active Substance: CRIZOTINIB
     Dosage: 200 MG, 1X/DAY
     Route: 048
  6. CODEINE PHOSPHATE [Concomitant]
     Active Substance: CODEINE PHOSPHATE
     Dosage: 40 MG (2 TAB), 4X/DAY
     Route: 048

REACTIONS (5)
  - Neoplasm progression [Fatal]
  - Cerebral haemorrhage [Unknown]
  - Coma [Unknown]
  - Off label use [Unknown]
  - Cardiac arrest [Unknown]
